FAERS Safety Report 10744918 (Version 1)
Quarter: 2015Q1

REPORT INFORMATION
  Report Type: Spontaneous
  Country: US (occurrence: US)
  Receive Date: 20150128
  Receipt Date: 20150128
  Transmission Date: 20150721
  Serious: Yes (Other)
  Sender: FDA-Public Use
  Company Number: US-GLAXOSMITHKLINE-US2014GSK048480

PATIENT
  Sex: Male
  Weight: 115 kg

DRUGS (14)
  1. NEURONTIN [Concomitant]
     Active Substance: GABAPENTIN
  2. VIIBRYD [Concomitant]
     Active Substance: VILAZODONE HYDROCHLORIDE
  3. NORCO [Concomitant]
     Active Substance: ACETAMINOPHEN\HYDROCODONE BITARTRATE
  4. XARELTO [Concomitant]
     Active Substance: RIVAROXABAN
  5. MEKINIST [Suspect]
     Active Substance: TRAMETINIB DIMETHYL SULFOXIDE
     Indication: METASTATIC MALIGNANT MELANOMA
     Dosage: 2 MG, QD
     Route: 048
     Dates: start: 201409
  6. BENICAR HCT [Concomitant]
     Active Substance: HYDROCHLOROTHIAZIDE\OLMESARTAN MEDOXOMIL
  7. CLONIDINE. [Concomitant]
     Active Substance: CLONIDINE
  8. DESONIDE. [Concomitant]
     Active Substance: DESONIDE
  9. TAFINLAR [Suspect]
     Active Substance: DABRAFENIB MESYLATE
     Indication: METASTATIC MALIGNANT MELANOMA
     Dosage: 150 MG, BID
     Route: 048
     Dates: start: 201409
  10. NOVOLOG [Concomitant]
     Active Substance: INSULIN ASPART
  11. LEVAQUIN [Concomitant]
     Active Substance: LEVOFLOXACIN
  12. LEVEMIR [Concomitant]
     Active Substance: INSULIN DETEMIR
  13. KETOCONAZOLE. [Concomitant]
     Active Substance: KETOCONAZOLE
  14. GABAPENTIN. [Concomitant]
     Active Substance: GABAPENTIN

REACTIONS (2)
  - Hypertension [Unknown]
  - Diabetes mellitus [Not Recovered/Not Resolved]
